FAERS Safety Report 7834288-1 (Version None)
Quarter: 2011Q4

REPORT INFORMATION
  Report Type: 
  Country: None (occurrence: None)
  Receive Date: 20111024
  Receipt Date: 20111021
  Transmission Date: 20120403
  Serious: Yes (Hospitalization)
  Sender: FDA-Public Use
  Company Number: US-PFIZER INC-2011255894

PATIENT
  Sex: Male
  Weight: 90.703 kg

DRUGS (6)
  1. GABAPENTIN [Suspect]
     Indication: HYPOAESTHESIA
     Dosage: 400MG IN MORNING AND 800MG AT NIGHT
     Dates: start: 20110926
  2. GABAPENTIN [Suspect]
     Indication: BACK PAIN
     Dosage: 300 MG, AS NEEDED
     Dates: end: 20110701
  3. OXYCODONE [Concomitant]
     Indication: BACK PAIN
     Dosage: 5 MG, DAILY
  4. GABAPENTIN [Suspect]
     Indication: INTERVERTEBRAL DISC PROTRUSION
  5. GABAPENTIN [Suspect]
     Indication: ASTHENIA
  6. GABAPENTIN [Suspect]
     Indication: PARAESTHESIA

REACTIONS (6)
  - ANGER [None]
  - NASAL CONGESTION [None]
  - DIARRHOEA [None]
  - SURGERY [None]
  - ANXIETY [None]
  - HEADACHE [None]
